FAERS Safety Report 7590521-5 (Version None)
Quarter: 2011Q3

REPORT INFORMATION
  Report Type: 
  Country: None (occurrence: None)
  Receive Date: 20110705
  Receipt Date: 20110627
  Transmission Date: 20111222
  Serious: Yes (Hospitalization, Other)
  Sender: FDA-Public Use
  Company Number: GB-TEVA-288817ISR

PATIENT
  Age: 29 Year
  Sex: Female

DRUGS (9)
  1. LAMIVUDINE + ZIDOVUDINE [Suspect]
  2. FAMCICLOVIR [Suspect]
     Route: 048
  3. FLUCONAZOLE [Suspect]
  4. ACYCLOVIR [Suspect]
     Indication: NECROTISING RETINITIS
     Dosage: 30 MG/KG;
     Route: 042
  5. COTRIM [Suspect]
  6. ACYCLOVIR [Suspect]
  7. AMOXICILLIN [Suspect]
     Indication: LOWER RESPIRATORY TRACT INFECTION
  8. NEVIRAPINE [Suspect]
  9. ACYCLOVIR [Suspect]
     Dosage: 1600 MILLIGRAM;
     Route: 048

REACTIONS (16)
  - NECROTISING RETINITIS [None]
  - ANGIOEDEMA [None]
  - HAEMOGLOBIN DECREASED [None]
  - VISUAL ACUITY REDUCED [None]
  - SKIN DISORDER [None]
  - CD4 LYMPHOCYTES DECREASED [None]
  - CHEST DISCOMFORT [None]
  - CATARACT [None]
  - DRUG HYPERSENSITIVITY [None]
  - RETINITIS [None]
  - RASH [None]
  - SWELLING [None]
  - VISION BLURRED [None]
  - LOWER RESPIRATORY TRACT INFECTION [None]
  - RASH ERYTHEMATOUS [None]
  - RASH MACULO-PAPULAR [None]
